FAERS Safety Report 6998936-0 (Version None)
Quarter: 2010Q3

REPORT INFORMATION
  Report Type: 
  Country: None (occurrence: None)
  Receive Date: 20100920
  Receipt Date: 20100527
  Transmission Date: 20110219
  Serious: Yes (Other)
  Sender: FDA-Public Use
  Company Number: US-ASTRAZENECA-2010SE26736

PATIENT
  Age: 553 Month
  Sex: Female
  Weight: 45.8 kg

DRUGS (2)
  1. SEROQUEL [Suspect]
     Route: 048
     Dates: start: 19991111
  2. PAXIL [Concomitant]
     Route: 048
     Dates: start: 19991111

REACTIONS (3)
  - PANCREATITIS [None]
  - SUICIDAL IDEATION [None]
  - TARDIVE DYSKINESIA [None]
